FAERS Safety Report 12174784 (Version 3)
Quarter: 2016Q2

REPORT INFORMATION
  Report Type: Spontaneous
  Country: US (occurrence: US)
  Receive Date: 20160314
  Receipt Date: 20160420
  Transmission Date: 20160815
  Serious: Yes (Death, Life-Threatening, Hospitalization, Other)
  Sender: FDA-Public Use
  Company Number: US-ALEXION PHARMACEUTICALS INC-A201601624

PATIENT
  Sex: Male

DRUGS (1)
  1. SOLIRIS [Suspect]
     Active Substance: ECULIZUMAB
     Indication: HAEMOLYTIC URAEMIC SYNDROME
     Dosage: 900 MG, QW
     Route: 042
     Dates: start: 20160224

REACTIONS (5)
  - Neoplasm malignant [Fatal]
  - Haemoglobin decreased [Unknown]
  - Malignant pleural effusion [Unknown]
  - Hypertension [Not Recovered/Not Resolved]
  - Glomerular filtration rate decreased [Unknown]
